FAERS Safety Report 5795293-2 (Version None)
Quarter: 2008Q2

REPORT INFORMATION
  Report Type: 
  Country: None (occurrence: None)
  Receive Date: 20080630
  Receipt Date: 20080616
  Transmission Date: 20081010
  Serious: Yes (Hospitalization, Other)
  Sender: FDA-Public Use
  Company Number: CA-ELI_LILLY_AND_COMPANY-CA200806003670

PATIENT
  Age: 64 Year
  Sex: Male

DRUGS (14)
  1. FORTEO [Suspect]
     Indication: OSTEOPOROSIS
     Dosage: 20 UG, DAILY (1/D)
     Route: 058
     Dates: start: 20080516
  2. DILANTIN [Concomitant]
     Dosage: UNK, UNK
     Dates: start: 20080522
  3. NITROGLYCERIN [Concomitant]
  4. ASAPHEN [Concomitant]
  5. MICARDIS HCT [Concomitant]
  6. LIPITOR [Concomitant]
  7. PLAVIX [Concomitant]
  8. NORVASC [Concomitant]
  9. LECTOPAM TAB [Concomitant]
  10. NOVOCHLOROQUINE [Concomitant]
  11. APO-PREDNISONE [Concomitant]
  12. SULFASALAZINE [Concomitant]
  13. CALCIUM                                 /N/A/ [Concomitant]
  14. PANTOLOC                           /01263201/ [Concomitant]

REACTIONS (2)
  - BLOOD SODIUM DECREASED [None]
  - CONVULSION [None]
